FAERS Safety Report 20986022 (Version 1)
Quarter: 2022Q2

REPORT INFORMATION
  Report Type: Spontaneous
  Country: US (occurrence: None)
  Receive Date: 20220619
  Receipt Date: 20220619
  Transmission Date: 20220721
  Serious: Yes (Disabling, Other)
  Sender: FDA-Public Use
  Company Number: None

PATIENT
  Age: 38 Year
  Sex: Male
  Weight: 103.5 kg

DRUGS (6)
  1. PAXLOVID [Suspect]
     Active Substance: NIRMATRELVIR\RITONAVIR
     Indication: COVID-19
     Dosage: OTHER QUANTITY : 3 TABLET(S);?FREQUENCY : TWICE A DAY;?
     Route: 048
     Dates: start: 20220601, end: 20220602
  2. CETIRIZINE HYDROCHLORIDE [Concomitant]
     Active Substance: CETIRIZINE HYDROCHLORIDE
  3. LICORICE TINCTURE [Concomitant]
  4. BURDOCK TINCTURE [Concomitant]
  5. MILK THISTLE TINCTURE [Concomitant]
  6. CORTIZONE CREAM [Concomitant]

REACTIONS (3)
  - Rash pruritic [None]
  - Scar [None]
  - Skin disorder [None]

NARRATIVE: CASE EVENT DATE: 20220602
